FAERS Safety Report 7676781-0 (Version None)
Quarter: 2011Q3

REPORT INFORMATION
  Report Type: 
  Country: None (occurrence: None)
  Receive Date: 20110805
  Receipt Date: 20110721
  Transmission Date: 20111222
  Serious: Yes (Hospitalization, Other)
  Sender: FDA-Public Use
  Company Number: 2011MA009257

PATIENT
  Age: 35 Year
  Sex: Female

DRUGS (2)
  1. OTC COLD SYRUP (NO PREF. NAME) [Suspect]
     Indication: HEADACHE
  2. ZOLPIDEM TARTRATE EXTENDED-RELEASE TABLETS 12.5MG (ASALLC) (ZOLPIDEM) [Suspect]
     Indication: DEPRESSION
     Dosage: 500 MG; QD

REACTIONS (13)
  - PROTRUSION TONGUE [None]
  - EUPHORIC MOOD [None]
  - ALTERED STATE OF CONSCIOUSNESS [None]
  - DRUG ABUSE [None]
  - DRUG DEPENDENCE [None]
  - DYSPNOEA [None]
  - GRAND MAL CONVULSION [None]
  - DYSKINESIA [None]
  - FEELING OF RELAXATION [None]
  - PALPITATIONS [None]
  - INCORRECT DOSE ADMINISTERED [None]
  - DRUG WITHDRAWAL SYNDROME [None]
  - ANXIETY [None]
